FAERS Safety Report 13671888 (Version 1)
Quarter: 2017Q2

REPORT INFORMATION
  Report Type: Report from Study
  Country: MX (occurrence: MX)
  Receive Date: 20170621
  Receipt Date: 20170621
  Transmission Date: 20170830
  Serious: Yes (Hospitalization)
  Sender: FDA-Public Use
  Company Number: MX-EMD SERONO-E2B_80071906

PATIENT
  Age: 49 Year
  Sex: Female

DRUGS (6)
  1. REBIF [Suspect]
     Active Substance: INTERFERON BETA-1A
     Indication: SPINAL CORD HERNIATION
     Dosage: SECOND APPLICATION
     Dates: start: 201703
  2. PRIKUL /01614101/ [Suspect]
     Active Substance: PREGABALIN
     Indication: PRODUCT USED FOR UNKNOWN INDICATION
  3. EUTIROX [Concomitant]
     Active Substance: LEVOTHYROXINE SODIUM
     Indication: HYPOTHYROIDISM
  4. REBIF [Suspect]
     Active Substance: INTERFERON BETA-1A
     Dosage: THIRD APPLICATION
     Dates: start: 20170314
  5. REBIF [Suspect]
     Active Substance: INTERFERON BETA-1A
     Indication: SPINAL COLUMN INJURY
     Route: 058
     Dates: start: 20170303
  6. DULOXETINE. [Suspect]
     Active Substance: DULOXETINE
     Indication: PRODUCT USED FOR UNKNOWN INDICATION
     Dates: start: 201703

REACTIONS (12)
  - Anxiety [Recovered/Resolved]
  - Headache [Recovered/Resolved]
  - Tremor [Recovering/Resolving]
  - Gait disturbance [Recovering/Resolving]
  - Dizziness [Recovering/Resolving]
  - Paraesthesia [Recovering/Resolving]
  - Depression [Recovered/Resolved]
  - Muscular weakness [Unknown]
  - Hypophagia [Unknown]
  - Dry mouth [Recovering/Resolving]
  - Hypersensitivity [Recovered/Resolved]
  - Drug prescribing error [Unknown]

NARRATIVE: CASE EVENT DATE: 201703
